FAERS Safety Report 6313802-1 (Version None)
Quarter: 2009Q3

REPORT INFORMATION
  Report Type: 
  Country: None (occurrence: None)
  Receive Date: 20090818
  Receipt Date: 20090414
  Transmission Date: 20100115
  Serious: No
  Sender: FDA-Public Use
  Company Number: US-BRISTOL-MYERS SQUIBB COMPANY-14587497

PATIENT
  Age: 42 Year
  Sex: Male
  Weight: 57 kg

DRUGS (9)
  1. REYATAZ [Suspect]
     Dates: start: 20060301
  2. NORVIR [Concomitant]
  3. ZIAGEN [Concomitant]
  4. VIREAD [Concomitant]
  5. TRICOR [Concomitant]
  6. PRAVACHOL [Concomitant]
  7. LISINOPRIL [Concomitant]
  8. PAXIL [Concomitant]
  9. NEURONTIN [Concomitant]

REACTIONS (1)
  - NEPHROLITHIASIS [None]
